FAERS Safety Report 8484916-5 (Version None)
Quarter: 2012Q3

REPORT INFORMATION
  Report Type: 
  Country: None (occurrence: None)
  Receive Date: 20120703
  Receipt Date: 20120625
  Transmission Date: 20120928
  Serious: Yes (Other)
  Sender: FDA-Public Use
  Company Number: JP-ASTELLAS-2012JP005407

PATIENT
  Sex: Male
  Weight: 76.9 kg

DRUGS (15)
  1. PROGRAF [Suspect]
     Indication: COLITIS ULCERATIVE
     Dosage: 3 MG, BID
     Route: 048
     Dates: start: 20120605, end: 20120608
  2. SITAGLIPTIN PHOSPHATE [Concomitant]
     Indication: DIABETES MELLITUS
     Dosage: 50 MG, UID/QD
     Route: 048
     Dates: start: 20110514
  3. HICALIQ [Concomitant]
     Dosage: UNK
     Route: 065
     Dates: start: 20120608
  4. PENTASA [Concomitant]
     Indication: COLITIS ULCERATIVE
     Dosage: 2000 MG, BID
     Route: 048
     Dates: start: 20110426
  5. PATELL [Concomitant]
     Indication: BACK PAIN
     Dosage: 1 DF, UID/QD
     Route: 061
     Dates: start: 20120602, end: 20120618
  6. SULFAMETHOXAZOLE AND TRIMETHOPRIM [Concomitant]
     Indication: PROPHYLAXIS
     Dosage: 1 G, UID/QD
     Route: 048
     Dates: start: 20120601, end: 20120623
  7. PROGRAF [Suspect]
     Dosage: 1.5 MG, BID
     Route: 048
     Dates: start: 20120609, end: 20120613
  8. ZOLPIDEM [Concomitant]
     Indication: INSOMNIA
     Dosage: 5 MG, UID/QD
     Route: 048
     Dates: start: 20120526
  9. MUCOSTA [Concomitant]
     Indication: COLITIS ULCERATIVE
     Dosage: 100 MG, UID/QD
     Route: 048
     Dates: start: 20120610, end: 20120612
  10. PROGRAF [Suspect]
     Dosage: 4 MG, BID
     Route: 048
     Dates: start: 20120601, end: 20120604
  11. FUNGIZONE [Concomitant]
     Indication: PROPHYLAXIS
     Dosage: 100 MG, BID
     Route: 048
     Dates: start: 20120601, end: 20120623
  12. RABEPRAZOLE SODIUM [Concomitant]
     Indication: GASTRIC ULCER
     Dosage: 10 MG, UID/QD
     Route: 048
     Dates: start: 20120607
  13. LOBU [Concomitant]
     Indication: COLITIS ULCERATIVE
     Dosage: 60 MG, UID/QD
     Route: 048
     Dates: start: 20120610, end: 20120612
  14. POPIDON [Concomitant]
     Indication: INFECTION PROPHYLAXIS
     Dosage: UNK
     Route: 061
     Dates: start: 20120601, end: 20120623
  15. BIO-THREE [Concomitant]
     Indication: COLITIS ULCERATIVE
     Dosage: 1 DF, BID
     Route: 048
     Dates: start: 20110426

REACTIONS (3)
  - RENAL IMPAIRMENT [None]
  - HYPERKALAEMIA [None]
  - ANAEMIA [None]
